FAERS Safety Report 14554138 (Version 1)
Quarter: 2018Q1

REPORT INFORMATION
  Report Type: Spontaneous
  Country: US (occurrence: US)
  Receive Date: 20180208
  Receipt Date: 20180208
  Transmission Date: 20180509
  Serious: Yes (Hospitalization)
  Sender: FDA-Public Use
  Company Number: None

PATIENT
  Age: 52 Year
  Sex: Male
  Weight: 145.5 kg

DRUGS (1)
  1. CLINDAMYCIN. [Suspect]
     Active Substance: CLINDAMYCIN
     Indication: CELLULITIS
     Route: 048
     Dates: end: 20150417

REACTIONS (4)
  - Dyspnoea [None]
  - Anaphylactic shock [None]
  - Swollen tongue [None]
  - Pyrexia [None]

NARRATIVE: CASE EVENT DATE: 20150417
